FAERS Safety Report 8203085-X (Version None)
Quarter: 2012Q1

REPORT INFORMATION
  Report Type: 
  Country: None (occurrence: None)
  Receive Date: 20120312
  Receipt Date: 20120302
  Transmission Date: 20120608
  Serious: Yes (Death, Hospitalization, Other)
  Sender: FDA-Public Use
  Company Number: US-BAXTER-2012BH004290

PATIENT
  Sex: Male

DRUGS (1)
  1. DIANEAL [Suspect]
     Indication: PERITONEAL DIALYSIS
     Route: 033
     Dates: end: 20120206

REACTIONS (6)
  - CEREBROVASCULAR ACCIDENT [None]
  - SYSTEMIC LUPUS ERYTHEMATOSUS [None]
  - PLATELET COUNT DECREASED [None]
  - HAEMORRHAGE INTRACRANIAL [None]
  - PNEUMONIA [None]
  - HYPERKALAEMIA [None]
